APPROVED DRUG PRODUCT: COLESTID
Active Ingredient: COLESTIPOL HYDROCHLORIDE
Strength: 5GM/SCOOPFUL
Dosage Form/Route: GRANULE;ORAL
Application: N017563 | Product #003 | TE Code: AB
Applicant: PFIZER INC
Approved: Sep 22, 1995 | RLD: Yes | RS: No | Type: RX